FAERS Safety Report 5162422-3 (Version None)
Quarter: 2006Q4

REPORT INFORMATION
  Report Type: 
  Country: None (occurrence: None)
  Receive Date: 20061128
  Receipt Date: 20061128
  Transmission Date: 20070319
  Serious: Yes (Other)
  Sender: FDA-Public Use
  Company Number: None

PATIENT
  Age: 87 Year
  Sex: Male
  Weight: 86.637 kg

DRUGS (12)
  1. LISINOPRIL [Suspect]
     Indication: HYPERTENSION
     Dosage: 10MG PO QD
     Route: 048
     Dates: start: 20060715
  2. ACETAMINOPHEN [Concomitant]
  3. ASCORBIC ACID [Concomitant]
  4. ASPIRIN [Concomitant]
  5. CARBAMIDE PEROXIDE [Concomitant]
  6. DIVALPROEX SODIUM [Concomitant]
  7. EPOETIN ALFA,RECOMBINANT [Concomitant]
  8. FERROUS SULFATE TAB [Concomitant]
  9. METOPROLOL SUCCINATE [Concomitant]
  10. SIMETHICONE [Concomitant]
  11. SIMVASTATIN [Concomitant]
  12. TAMSULOSIN HCL [Concomitant]

REACTIONS (1)
  - HYPERKALAEMIA [None]
